FAERS Safety Report 13618189 (Version 5)
Quarter: 2018Q4

REPORT INFORMATION
  Report Type: Spontaneous
  Country: GB (occurrence: GB)
  Receive Date: 20170606
  Receipt Date: 20181012
  Transmission Date: 20190204
  Serious: Yes (Death, Other)
  Sender: FDA-Public Use
  Company Number: GB-TEVA-774319ACC

PATIENT
  Age: 56 Year
  Sex: Male

DRUGS (6)
  1. ZAPONEX [Suspect]
     Active Substance: CLOZAPINE
     Route: 048
     Dates: start: 20170505, end: 20170601
  2. ZAPONEX [Suspect]
     Active Substance: CLOZAPINE
     Route: 048
     Dates: start: 20170606, end: 20171225
  3. 5-FLUOROURACIL [Suspect]
     Active Substance: FLUOROURACIL
     Indication: SQUAMOUS CELL CARCINOMA
     Route: 065
     Dates: start: 20170425
  4. CETUXIMAB. [Suspect]
     Active Substance: CETUXIMAB
     Indication: SQUAMOUS CELL CARCINOMA
     Route: 065
     Dates: start: 20170425
  5. ZAPONEX [Suspect]
     Active Substance: CLOZAPINE
     Route: 048
     Dates: start: 20051020, end: 20170502
  6. CISPLATIN. [Suspect]
     Active Substance: CISPLATIN
     Indication: SQUAMOUS CELL CARCINOMA
     Route: 065
     Dates: start: 201606

REACTIONS (15)
  - C-reactive protein increased [Fatal]
  - Platelet count increased [Fatal]
  - Lymphocyte count decreased [Fatal]
  - Platelet count increased [Fatal]
  - Anaemia [Fatal]
  - Neutropenia [Fatal]
  - White blood cell count decreased [Recovered/Resolved]
  - Leukopenia [Fatal]
  - Amylase decreased [Fatal]
  - Head and neck cancer [Fatal]
  - Thrombocytopenia [Fatal]
  - Contraindicated product administered [Fatal]
  - Blood glucose increased [Fatal]
  - Neutrophil count decreased [Fatal]
  - Platelet count decreased [Recovered/Resolved]

NARRATIVE: CASE EVENT DATE: 201606
